FAERS Safety Report 8103294-4 (Version None)
Quarter: 2012Q1

REPORT INFORMATION
  Report Type: 
  Country: None (occurrence: None)
  Receive Date: 20120127
  Receipt Date: 20120119
  Transmission Date: 20120608
  Serious: No
  Sender: FDA-Public Use
  Company Number: 2012SP003861

PATIENT
  Age: 70 Year
  Sex: Female

DRUGS (2)
  1. SAPHRIS [Suspect]
     Indication: NERVOUS SYSTEM DISORDER
     Dosage: 10 MG;BID;SL
     Route: 060
     Dates: start: 20110901, end: 20120111
  2. SAPHRIS [Suspect]
     Indication: DEPRESSION
     Dosage: 10 MG;BID;SL
     Route: 060
     Dates: start: 20110901, end: 20120111

REACTIONS (10)
  - DYSPNOEA [None]
  - VIRAL INFECTION [None]
  - AGEUSIA [None]
  - NAUSEA [None]
  - DIARRHOEA [None]
  - URINARY INCONTINENCE [None]
  - INSOMNIA [None]
  - ABDOMINAL PAIN [None]
  - OFF LABEL USE [None]
  - HEADACHE [None]
